FAERS Safety Report 7622033-4 (Version None)
Quarter: 2011Q3

REPORT INFORMATION
  Report Type: 
  Country: None (occurrence: None)
  Receive Date: 20110720
  Receipt Date: 20101221
  Transmission Date: 20111222
  Serious: Yes (Other)
  Sender: FDA-Public Use
  Company Number: US-BAYER-2010-008249

PATIENT
  Age: 40 Year
  Sex: Female

DRUGS (1)
  1. MIRENA [Suspect]
     Indication: CONTRACEPTION
     Dosage: UNK
     Dates: start: 20101216, end: 20101220

REACTIONS (11)
  - VAGINAL HAEMORRHAGE [None]
  - BALANCE DISORDER [None]
  - DECREASED APPETITE [None]
  - DIZZINESS [None]
  - PROCEDURAL PAIN [None]
  - MUSCLE SPASMS [None]
  - ABDOMINAL DISTENSION [None]
  - PYREXIA [None]
  - PAIN [None]
  - LETHARGY [None]
  - UTERINE PAIN [None]
